FAERS Safety Report 5860751-9 (Version None)
Quarter: 2008Q3

REPORT INFORMATION
  Report Type: 
  Country: None (occurrence: None)
  Receive Date: 20080827
  Receipt Date: 20080409
  Transmission Date: 20090109
  Serious: No
  Sender: FDA-Public Use
  Company Number: US-ABBOTT-07P-163-0423716-00

PATIENT
  Sex: Male
  Weight: 85.352 kg

DRUGS (9)
  1. COATED PDS [Suspect]
     Indication: ARTERIOSCLEROSIS
     Route: 048
     Dates: start: 20071201
  2. COATED PDS [Suspect]
     Route: 048
  3. COATED PDS [Suspect]
     Route: 048
     Dates: end: 20080201
  4. COATED PDS [Suspect]
     Route: 048
     Dates: start: 20080201, end: 20080301
  5. COATED PDS [Suspect]
     Dosage: 1000 MG IN THE MORNING
     Route: 048
     Dates: start: 20080404
  6. COATED PDS [Suspect]
     Dosage: UNCOATED
  7. ATORVASTATIN CALCIUM [Concomitant]
     Indication: DRUG USE FOR UNKNOWN INDICATION
     Route: 048
  8. ACETYLSALICYLIC ACID SRT [Concomitant]
     Indication: DRUG USE FOR UNKNOWN INDICATION
     Route: 048
  9. ESOMEPRAZOLE MAGNESIUM [Concomitant]
     Indication: GASTROOESOPHAGEAL REFLUX DISEASE
     Route: 048

REACTIONS (3)
  - FLUSHING [None]
  - GASTROOESOPHAGEAL REFLUX DISEASE [None]
  - INITIAL INSOMNIA [None]
